FAERS Safety Report 13550270 (Version 1)
Quarter: 2017Q2

REPORT INFORMATION
  Report Type: Spontaneous
  Country: US (occurrence: US)
  Receive Date: 20170515
  Receipt Date: 20170515
  Transmission Date: 20170830
  Serious: No
  Sender: FDA-Public Use
  Company Number: None

PATIENT
  Age: 55 Year
  Sex: Female

DRUGS (1)
  1. MYCOPHENOLAT TAB 500MG [Suspect]
     Active Substance: MYCOPHENOLATE MOFETIL

REACTIONS (8)
  - Lymphadenopathy [None]
  - Haemorrhage [None]
  - Gingival discolouration [None]
  - Fatigue [None]
  - Pallor [None]
  - Night sweats [None]
  - Contusion [None]
  - Gingival pain [None]

NARRATIVE: CASE EVENT DATE: 20170515
